FAERS Safety Report 7338462-2 (Version None)
Quarter: 2011Q1

REPORT INFORMATION
  Report Type: 
  Country: None (occurrence: None)
  Receive Date: 20110308
  Receipt Date: 20110223
  Transmission Date: 20110831
  Serious: Yes (Other)
  Sender: FDA-Public Use
  Company Number: FR-ELI_LILLY_AND_COMPANY-FR201103001428

PATIENT
  Sex: Male

DRUGS (12)
  1. COUMADIN [Concomitant]
     Dosage: 1.5 MG, 2/D
  2. PLAVIX [Concomitant]
     Indication: THROMBOANGIITIS OBLITERANS
     Dosage: 75 MG, DAILY (1/D)
     Route: 048
  3. TAHOR [Concomitant]
     Dosage: 10 MG, DAILY (1/D)
     Route: 048
  4. CYMBALTA [Suspect]
     Dosage: 30 MG, 2/D
  5. RIVOTRIL [Concomitant]
     Dosage: 2 MG, 3/D
     Route: 048
  6. KARDEGIC [Concomitant]
     Indication: THROMBOANGIITIS OBLITERANS
     Dosage: 160 MG, UNK
     Route: 048
  7. ACTISKENAN [Concomitant]
     Dosage: 10 MG, OTHER
     Route: 048
  8. COUMADIN [Concomitant]
     Indication: THROMBOANGIITIS OBLITERANS
     Dosage: 6 MG, DAILY (1/D)
     Route: 048
     Dates: end: 20090310
  9. LYRICA [Concomitant]
     Dosage: 200 MG, 2/D
     Route: 048
  10. CYMBALTA [Suspect]
     Indication: DEPRESSION
     Dosage: 60 MG, DAILY (1/D)
     Route: 048
     Dates: start: 20090228, end: 20090310
  11. MOPRAL [Concomitant]
     Dosage: 20 MG, DAILY (1/D)
     Route: 048
  12. FORLAX [Concomitant]
     Dosage: 3 D/F, DAILY (1/D)
     Route: 048

REACTIONS (5)
  - EPISTAXIS [None]
  - FEELING ABNORMAL [None]
  - PETECHIAE [None]
  - MELAENA [None]
  - INTERNATIONAL NORMALISED RATIO INCREASED [None]
